FAERS Safety Report 14125121 (Version 3)
Quarter: 2018Q1

REPORT INFORMATION
  Report Type: Spontaneous
  Country: JP (occurrence: JP)
  Receive Date: 20171025
  Receipt Date: 20180228
  Transmission Date: 20180508
  Serious: Yes (Other)
  Sender: FDA-Public Use
  Company Number: PHJP2017JP031524

PATIENT
  Age: 58 Year
  Sex: Female

DRUGS (2)
  1. AFINITOR [Suspect]
     Active Substance: EVEROLIMUS
     Indication: BREAST CANCER STAGE III
     Dosage: UNK
     Route: 048
     Dates: start: 20150120, end: 20160329
  2. EXEMESTANE. [Concomitant]
     Active Substance: EXEMESTANE
     Indication: BREAST CANCER STAGE III
     Dosage: UNK
     Route: 048

REACTIONS (1)
  - Cardiomyopathy [Unknown]
